FAERS Safety Report 14185075 (Version 2)
Quarter: 2017Q4

REPORT INFORMATION
  Report Type: Spontaneous
  Country: US (occurrence: US)
  Receive Date: 20171114
  Receipt Date: 20171117
  Transmission Date: 20180321
  Serious: Yes (Hospitalization)
  Sender: FDA-Public Use
  Company Number: US-RECKITT BENCKISER HEALTHCARE INT LIMITED-RB-97829-2017

PATIENT
  Age: 4 Year
  Sex: Male

DRUGS (1)
  1. CHILDRENS DELSYM COUGH PLUS CHEST CONGESTION DM [Suspect]
     Active Substance: DEXTROMETHORPHAN HYDROBROMIDE\GUAIFENESIN
     Indication: NASOPHARYNGITIS
     Dosage: 5 ML, BID (AMOUNT USED: 10 ML)
     Route: 065
     Dates: start: 20171105, end: 20171105

REACTIONS (8)
  - Bronchial hyperreactivity [Recovered/Resolved]
  - Overdose [Recovered/Resolved]
  - Oxygen saturation decreased [Recovered/Resolved]
  - Dyspnoea [Recovered/Resolved]
  - Drug-disease interaction [Recovered/Resolved]
  - Drug ineffective [Not Recovered/Not Resolved]
  - Drug administered to patient of inappropriate age [Recovered/Resolved]
  - Heart rate increased [Recovered/Resolved]

NARRATIVE: CASE EVENT DATE: 201711
